FAERS Safety Report 23795415 (Version 1)
Quarter: 2024Q2

REPORT INFORMATION
  Report Type: Spontaneous
  Country: CA (occurrence: CA)
  Receive Date: 20240429
  Receipt Date: 20240429
  Transmission Date: 20240715
  Serious: Yes (Hospitalization)
  Sender: FDA-Public Use
  Company Number: CA-TEVA-VS-3191025

PATIENT
  Age: 78 Year
  Sex: Male

DRUGS (3)
  1. NAPROXEN [Suspect]
     Active Substance: NAPROXEN
     Indication: Product used for unknown indication
     Dosage: TIME INTERVAL: 0.33333333 DAYS
     Route: 065
  2. PERINDOPRIL [Suspect]
     Active Substance: PERINDOPRIL
     Indication: Product used for unknown indication
     Route: 065
  3. ISOVUE [Suspect]
     Active Substance: IOPAMIDOL
     Indication: Product used for unknown indication
     Route: 065

REACTIONS (5)
  - Anuria [Unknown]
  - Blood creatinine increased [Unknown]
  - Hyponatraemia [Unknown]
  - Pericarditis [Unknown]
  - Renal failure [Unknown]
